FAERS Safety Report 10057994 (Version 1)
Quarter: 2014Q2

REPORT INFORMATION
  Report Type: Spontaneous
  Country: US (occurrence: None)
  Receive Date: 20140403
  Receipt Date: 20140403
  Transmission Date: 20141212
  Serious: Yes (Other)
  Sender: FDA-Public Use
  Company Number: None

PATIENT
  Age: 16 Year
  Sex: Male
  Weight: 78.93 kg

DRUGS (1)
  1. TAMIFLU (OSELTAMIR PHOSPHATE) CAPSULE [Suspect]
     Indication: PROPHYLAXIS
     Dosage: 75 MG, 1 PIU, ONCE A DAY, ORALLY
     Route: 048
     Dates: start: 20140303, end: 20140308

REACTIONS (4)
  - Emotional disorder [None]
  - Emotional disorder [None]
  - Abnormal behaviour [None]
  - Crying [None]
